FAERS Safety Report 6779694-1 (Version None)
Quarter: 2010Q2

REPORT INFORMATION
  Report Type: 
  Country: None (occurrence: None)
  Receive Date: 20100618
  Receipt Date: 20100607
  Transmission Date: 20101027
  Serious: Yes (Other)
  Sender: FDA-Public Use
  Company Number: PHHY2010BR37517

PATIENT
  Sex: Female

DRUGS (6)
  1. EXFORGE [Suspect]
     Indication: HYPERTENSION
     Dosage: 160/5 MG, ONCE DAILY
     Route: 048
     Dates: start: 20040101
  2. PAROX [Concomitant]
     Indication: DEPRESSION
     Dosage: 20 MG, QD
     Route: 048
     Dates: start: 20100201
  3. RIVOTRIL [Concomitant]
     Indication: SYNCOPE
     Dosage: 2 MG, QHS
     Route: 048
  4. RIVOTRIL [Concomitant]
     Dosage: 1 MG, BID, (MORNING AND AFTERNOON)
  5. MONOTREAN B6 [Concomitant]
     Indication: SYNCOPE
     Dosage: TWO TABLETS DAILY
     Route: 048
  6. PURAN T4 [Concomitant]
     Indication: HYPOTHYROIDISM
     Dosage: 88 MCG, ONE TABLET DAILY

REACTIONS (8)
  - ALOPECIA [None]
  - ARTHRALGIA [None]
  - DEPRESSION [None]
  - HYPERTHYROIDISM [None]
  - HYPOTHYROIDISM [None]
  - PALLOR [None]
  - PULMONARY OEDEMA [None]
  - SYNCOPE [None]
